FAERS Safety Report 20549566 (Version 1)
Quarter: 2022Q1

REPORT INFORMATION
  Report Type: Spontaneous
  Country: US (occurrence: US)
  Receive Date: 20220303
  Receipt Date: 20220303
  Transmission Date: 20220423
  Serious: No
  Sender: FDA-Public Use
  Company Number: US-ALLERGAN-2126298US

PATIENT
  Sex: Male

DRUGS (4)
  1. RESTASIS [Suspect]
     Active Substance: CYCLOSPORINE
     Indication: Eye injury
     Dosage: UNK
     Route: 047
     Dates: start: 202010
  2. Tropidex [Concomitant]
     Indication: Eye disorder
  3. XIIDRA [Concomitant]
     Active Substance: LIFITEGRAST
     Indication: Eye disorder
  4. CEQUA [Concomitant]
     Active Substance: CYCLOSPORINE
     Indication: Eye disorder

REACTIONS (2)
  - Eye irritation [Recovered/Resolved]
  - Eye pain [Recovered/Resolved]
